FAERS Safety Report 5315605-3 (Version None)
Quarter: 2007Q2

REPORT INFORMATION
  Report Type: 
  Country: None (occurrence: None)
  Receive Date: 20070427
  Receipt Date: 20070413
  Transmission Date: 20071010
  Serious: Yes (Hospitalization)
  Sender: FDA-Public Use
  Company Number: US015125

PATIENT
  Age: 53 Year
  Sex: Female
  Weight: 39.0093 kg

DRUGS (7)
  1. GABITRIL [Suspect]
     Indication: NEURALGIA
     Dosage: 12 MG ONCE ORAL
     Route: 048
     Dates: start: 20050408, end: 20050408
  2. GABITRIL [Suspect]
     Indication: RADICULOPATHY
     Dosage: 12 MG ONCE ORAL
     Route: 048
     Dates: start: 20050408, end: 20050408
  3. PROVIGIL [Concomitant]
  4. LEXAPRO [Concomitant]
  5. METHADONE HYDROCHLORIDE [Concomitant]
  6. HYDROCODONE BITARTRATE [Concomitant]
  7. SKELAXIN [Concomitant]

REACTIONS (31)
  - ABNORMAL BEHAVIOUR [None]
  - AGGRESSION [None]
  - ARRHYTHMIA [None]
  - ATRIOVENTRICULAR BLOCK SECOND DEGREE [None]
  - BELLIGERENCE [None]
  - BLOOD MAGNESIUM DECREASED [None]
  - BLOOD POTASSIUM DECREASED [None]
  - BRAIN NATRIURETIC PEPTIDE INCREASED [None]
  - CACHEXIA [None]
  - CEREBRAL INFARCTION [None]
  - CEREBROVASCULAR ACCIDENT [None]
  - CHRONIC OBSTRUCTIVE PULMONARY DISEASE [None]
  - COMPUTERISED TOMOGRAM ABNORMAL [None]
  - CONFUSIONAL STATE [None]
  - CONVULSION [None]
  - DEPRESSED LEVEL OF CONSCIOUSNESS [None]
  - DISCOMFORT [None]
  - DISTURBANCE IN ATTENTION [None]
  - ELECTROENCEPHALOGRAM ABNORMAL [None]
  - EXOSTOSIS [None]
  - METABOLIC ENCEPHALOPATHY [None]
  - MOTOR DYSFUNCTION [None]
  - NODULE [None]
  - NUTRITIONAL CONDITION ABNORMAL [None]
  - OSTEOPENIA [None]
  - PARAESTHESIA [None]
  - POLYMEDICATION [None]
  - RESTLESSNESS [None]
  - SCREAMING [None]
  - SUPRAVENTRICULAR TACHYCARDIA [None]
  - WEIGHT FLUCTUATION [None]
